FAERS Safety Report 16890082 (Version 1)
Quarter: 2019Q4

REPORT INFORMATION
  Report Type: Spontaneous
  Country: US (occurrence: US)
  Receive Date: 20191007
  Receipt Date: 20191007
  Transmission Date: 20200122
  Serious: Yes (Other)
  Sender: FDA-Public Use
  Company Number: US-PERRIGO-19US011561

PATIENT
  Age: 33 Year
  Sex: Female
  Weight: 46.26 kg

DRUGS (3)
  1. HEMORRHOIDAL OINTMENT (MINERAL OIL\PETROLATUM\PHENYLEPHRINE HYDROCHLORIDE) [Suspect]
     Active Substance: MINERAL OIL\PETROLATUM\PHENYLEPHRINE HYDROCHLORIDE
     Indication: HAEMORRHOIDS
     Dosage: UNK, SINGLE
     Route: 054
     Dates: start: 20190918, end: 20190918
  2. CITALOPRAM [Concomitant]
     Active Substance: CITALOPRAM HYDROBROMIDE
     Indication: ANXIETY
     Dosage: 10 MG, QHS
     Route: 065
  3. HEMORRHOIDAL OINTMENT (MINERAL OIL\PETROLATUM\PHENYLEPHRINE HYDROCHLORIDE) [Suspect]
     Active Substance: MINERAL OIL\PETROLATUM\PHENYLEPHRINE HYDROCHLORIDE
     Dosage: UNK, SINGLE
     Route: 054
     Dates: start: 20190919, end: 20190919

REACTIONS (10)
  - Chills [Recovered/Resolved]
  - Headache [Recovered/Resolved]
  - Loss of consciousness [Recovered/Resolved]
  - Hypoaesthesia [Recovered/Resolved]
  - Consciousness fluctuating [Recovered/Resolved]
  - Hyperhidrosis [Recovered/Resolved]
  - Somnolence [Recovered/Resolved]
  - Pyrexia [Recovered/Resolved]
  - Peripheral coldness [Recovered/Resolved]
  - Hangover [Recovered/Resolved]

NARRATIVE: CASE EVENT DATE: 20190919
